FAERS Safety Report 6646462-0 (Version None)
Quarter: 2010Q1

REPORT INFORMATION
  Report Type: 
  Country: None (occurrence: None)
  Receive Date: 20100317
  Receipt Date: 20100308
  Transmission Date: 20100710
  Serious: Yes (Other)
  Sender: FDA-Public Use
  Company Number: SPV1-2010-00431

PATIENT
  Sex: Male

DRUGS (2)
  1. DAYTRANA [Suspect]
     Indication: DRUG USE FOR UNKNOWN INDICATION
     Dosage: 15MG, 1X/DAY;QD TRANSDERMAL
     Route: 062
     Dates: start: 20100222
  2. DEXTROMETHORPHAN W/PHENYLEPHRINE (DEXTROMETHORPHAN, PHENYLEPHRINE) [Suspect]
     Indication: NASOPHARYNGITIS

REACTIONS (3)
  - DRUG INTERACTION [None]
  - LOSS OF CONSCIOUSNESS [None]
  - VISION BLURRED [None]
